FAERS Safety Report 14327235 (Version 1)
Quarter: 2017Q4

REPORT INFORMATION
  Report Type: Spontaneous
  Country: PH (occurrence: PH)
  Receive Date: 20171227
  Receipt Date: 20171227
  Transmission Date: 20180321
  Serious: Yes (Life-Threatening, Hospitalization, Other)
  Sender: FDA-Public Use
  Company Number: PH-TORRENT-00000013

PATIENT
  Age: 33 Year
  Sex: Male

DRUGS (3)
  1. METFORMIN [Suspect]
     Active Substance: METFORMIN HYDROCHLORIDE
     Indication: DIABETES MELLITUS
     Dosage: EQUIVALENT TO 14 G OF METFORMIN
     Route: 048
  2. METAMFETAMINE [Concomitant]
     Active Substance: METHAMPHETAMINE
     Indication: PRODUCT USED FOR UNKNOWN INDICATION
  3. GLIBENCLAMIDE [Suspect]
     Active Substance: GLYBURIDE
     Indication: DIABETES MELLITUS
     Dosage: EQUIVALENT TO 60 MG OF GLIBENCLAMIDE

REACTIONS (2)
  - Intentional overdose [Recovering/Resolving]
  - Lactic acidosis [Recovering/Resolving]
